FAERS Safety Report 14681241 (Version 1)
Quarter: 2018Q1

REPORT INFORMATION
  Report Type: Spontaneous
  Country: DE (occurrence: DE)
  Receive Date: 20180326
  Receipt Date: 20180326
  Transmission Date: 20180509
  Serious: Yes (Other)
  Sender: FDA-Public Use
  Company Number: DE-BAYER-2018-053044

PATIENT
  Sex: Male

DRUGS (1)
  1. GADOVIST [Suspect]
     Active Substance: GADOBUTROL
     Indication: NUCLEAR MAGNETIC RESONANCE IMAGING
     Dosage: 1 DF, ONCE
     Dates: start: 20180201, end: 20180201

REACTIONS (2)
  - Venous pressure increased [None]
  - Shunt occlusion [None]

NARRATIVE: CASE EVENT DATE: 20180201
